FAERS Safety Report 9278186 (Version 2)
Quarter: 2013Q2

REPORT INFORMATION
  Report Type: Spontaneous
  Country: US (occurrence: US)
  Receive Date: 20130508
  Receipt Date: 20130603
  Transmission Date: 20140414
  Serious: Yes (Death, Hospitalization)
  Sender: FDA-Public Use
  Company Number: US-ASTELLAS-2013US004766

PATIENT
  Age: 73 Year
  Sex: Male

DRUGS (1)
  1. PROGRAF [Suspect]
     Indication: LIVER TRANSPLANT
     Dosage: 1.5 MG, BID
     Route: 048
     Dates: start: 20071107, end: 20130518

REACTIONS (3)
  - Death [Fatal]
  - Graft complication [Unknown]
  - Infection [Unknown]
